FAERS Safety Report 16696828 (Version 1)
Quarter: 2019Q4

REPORT INFORMATION
  Report Type: Spontaneous
  Country: US (occurrence: US)
  Receive Date: 20190812
  Receipt Date: 20190812
  Transmission Date: 20200122
  Serious: Yes (Hospitalization)
  Sender: FDA-Public Use
  Company Number: None

PATIENT
  Sex: Female

DRUGS (6)
  1. PAROXETINE. [Concomitant]
     Active Substance: PAROXETINE
     Dates: start: 20190308
  2. AMLODIPINE [Concomitant]
     Active Substance: AMLODIPINE BESYLATE
     Dates: start: 20190225
  3. TYLENOL [Concomitant]
     Active Substance: ACETAMINOPHEN
     Dates: start: 20190809
  4. HUMIRA [Suspect]
     Active Substance: ADALIMUMAB
     Indication: COLITIS ULCERATIVE
     Dosage: ?          OTHER FREQUENCY:EVERY OTHER WEEK;?
     Route: 058
     Dates: start: 20180804
  5. EZETIMIBE. [Concomitant]
     Active Substance: EZETIMIBE
     Dates: start: 20190810
  6. OLMESA MEDOX [Concomitant]
     Dates: start: 20180814

REACTIONS (5)
  - Disease recurrence [None]
  - Depression [None]
  - Colitis ulcerative [None]
  - Post-traumatic stress disorder [None]
  - Weight increased [None]
